FAERS Safety Report 14579903 (Version 2)
Quarter: 2018Q1

REPORT INFORMATION
  Report Type: Report from Study
  Country: US (occurrence: US)
  Receive Date: 20180228
  Receipt Date: 20180328
  Transmission Date: 20180509
  Serious: Yes (Hospitalization)
  Sender: FDA-Public Use
  Company Number: US-ROCHE-2076022

PATIENT
  Age: 80 Year
  Sex: Male
  Weight: 88 kg

DRUGS (10)
  1. ENZALUTAMIDE [Suspect]
     Active Substance: ENZALUTAMIDE
     Indication: HORMONE-REFRACTORY PROSTATE CANCER
     Dosage: DATE OF MOST RECENT DOSE OF SUSPECTED ENZALUTAMIDE PRIOR TO AE ONSET ON 8 FEB 2018 AT 11 15 AND ON 1
     Route: 048
     Dates: start: 20180202
  2. PROCHLORPERAZINE. [Concomitant]
     Active Substance: PROCHLORPERAZINE
     Route: 048
     Dates: start: 20180209
  3. PRILOSEC [Concomitant]
     Active Substance: OMEPRAZOLE MAGNESIUM
     Route: 048
  4. BISOPROLOL [Concomitant]
     Active Substance: BISOPROLOL
     Route: 048
     Dates: start: 20160306
  5. ALLOPURINOL. [Concomitant]
     Active Substance: ALLOPURINOL
     Route: 048
     Dates: start: 20160306
  6. ATEZOLIZUMAB. [Suspect]
     Active Substance: ATEZOLIZUMAB
     Indication: HORMONE-REFRACTORY PROSTATE CANCER
     Dosage: MOST RECENT DOSE OF ATEZOLIZUMAB PRIOR TO AE ONSET 2 FEB 2018 AT 12 23?DOSE AS PER PROTOCOL: ATEZOLI
     Route: 042
     Dates: start: 20180202
  7. FLECAINIDE [Concomitant]
     Active Substance: FLECAINIDE
     Route: 048
     Dates: start: 20160513
  8. CHOLECALCIFEROL [Concomitant]
     Active Substance: CHOLECALCIFEROL
     Route: 048
     Dates: start: 20160513
  9. APIXABAN [Concomitant]
     Active Substance: APIXABAN
     Route: 048
     Dates: start: 20160306
  10. TAMSULOSIN [Concomitant]
     Active Substance: TAMSULOSIN
     Route: 048

REACTIONS (2)
  - Mental status changes [Recovering/Resolving]
  - Nausea [Recovering/Resolving]

NARRATIVE: CASE EVENT DATE: 20180209
